FAERS Safety Report 17659949 (Version 2)
Quarter: 2021Q2

REPORT INFORMATION
  Report Type: Spontaneous
  Country: DE (occurrence: DE)
  Receive Date: 20200413
  Receipt Date: 20210513
  Transmission Date: 20210716
  Serious: Yes (Other)
  Sender: FDA-Public Use
  Company Number: NVSC2020DE096948

PATIENT
  Sex: Female

DRUGS (1)
  1. AMOXI 750 ? 1 A PHARMA [Suspect]
     Active Substance: AMOXICILLIN
     Indication: URINARY TRACT DISORDER
     Dosage: 750 UNK
     Route: 065

REACTIONS (4)
  - Arrhythmia [Recovered/Resolved]
  - Heart rate increased [Recovered/Resolved]
  - Restlessness [Recovered/Resolved]
  - Insomnia [Recovered/Resolved]
